FAERS Safety Report 4469772-4 (Version None)
Quarter: 2004Q3

REPORT INFORMATION
  Report Type: 
  Country: None (occurrence: None)
  Receive Date: 20040920
  Receipt Date: 20040810
  Transmission Date: 20050211
  Serious: Yes (Death)
  Sender: FDA-Public Use
  Company Number: A-US2003-03315

PATIENT
  Age: 62 Year
  Sex: Male

DRUGS (11)
  1. TRACLEER [Suspect]
     Indication: PULMONARY HYPERTENSION
     Dosage: 62,5 MG, BID, ORAL
     Route: 048
     Dates: start: 20030601
  2. HUMULIN 70/30 (INSULIN HUMAN INJECTION, ISOPHANE, [Concomitant]
  3. MULTIVITAMIN [Concomitant]
  4. ASPIRIN [Concomitant]
  5. AVANDIA [Concomitant]
  6. ALDACTONE [Concomitant]
  7. TROPOL [Concomitant]
  8. FLUTOX (CLOPERASTINE HYDROCHLORIDE) [Concomitant]
  9. COUMADIN [Concomitant]
  10. LASIX [Concomitant]
  11. NEXIUM [Concomitant]

REACTIONS (2)
  - DEATH [None]
  - DIZZINESS [None]
